FAERS Safety Report 19494183 (Version 1)
Quarter: 2021Q3

REPORT INFORMATION
  Report Type: Spontaneous
  Country: US (occurrence: US)
  Receive Date: 20210706
  Receipt Date: 20210706
  Transmission Date: 20211014
  Serious: No
  Sender: FDA-Public Use
  Company Number: US-TEVA-2021-US-1930219

PATIENT
  Sex: Female

DRUGS (2)
  1. AUSTEDO [Suspect]
     Active Substance: DEUTETRABENAZINE
     Indication: TARDIVE DYSKINESIA
     Route: 065
  2. AUSTEDO [Suspect]
     Active Substance: DEUTETRABENAZINE
     Dosage: 24 MG TWICE DAILY DOSE
     Route: 065

REACTIONS (5)
  - Dry mouth [Unknown]
  - Hair texture abnormal [Unknown]
  - Chills [Unknown]
  - Fear [Unknown]
  - Insurance issue [Unknown]
